FAERS Safety Report 23915616 (Version 3)
Quarter: 2024Q2

REPORT INFORMATION
  Report Type: Spontaneous
  Country: US (occurrence: US)
  Receive Date: 20240529
  Receipt Date: 20240614
  Transmission Date: 20240716
  Serious: No
  Sender: FDA-Public Use
  Company Number: US-PFIZER INC-202400180094

PATIENT
  Age: 57 Year
  Sex: Male
  Weight: 119.72 kg

DRUGS (1)
  1. PAXLOVID [Suspect]
     Active Substance: NIRMATRELVIR\RITONAVIR
     Indication: COVID-19 treatment
     Dosage: 300/100 (TOOK FOR 5 DAYS)
     Route: 048
     Dates: start: 20240528, end: 20240601

REACTIONS (2)
  - COVID-19 [Unknown]
  - Disease recurrence [Unknown]
